FAERS Safety Report 20846894 (Version 1)
Quarter: 2022Q2

REPORT INFORMATION
  Report Type: Spontaneous
  Country: FR (occurrence: FR)
  Receive Date: 20220519
  Receipt Date: 20220519
  Transmission Date: 20220721
  Serious: Yes (Hospitalization, Other)
  Sender: FDA-Public Use
  Company Number: FR-AFSSAPS-SE20220514

PATIENT
  Age: 88 Year
  Sex: Male
  Weight: 74.2 kg

DRUGS (3)
  1. FUROSEMIDE [Suspect]
     Active Substance: FUROSEMIDE
     Indication: Pulmonary arterial hypertension
     Dosage: 250 MILLIGRAM, ONCE A DAY
     Route: 048
     Dates: start: 20181204, end: 20181221
  2. LOSARTAN [Suspect]
     Active Substance: LOSARTAN
     Indication: Pulmonary arterial hypertension
     Dosage: 50 MILLIGRAM, ONCE A DAY
     Route: 048
     Dates: end: 20181221
  3. SPIRONOLACTONE [Suspect]
     Active Substance: SPIRONOLACTONE
     Indication: Pulmonary arterial hypertension
     Dosage: 50 MILLIGRAM, ONCE A DAY
     Route: 048
     Dates: start: 201812, end: 20181221

REACTIONS (1)
  - Acute kidney injury [Recovered/Resolved]

NARRATIVE: CASE EVENT DATE: 20181221
